FAERS Safety Report 9420515 (Version 1)
Quarter: 2013Q3

REPORT INFORMATION
  Report Type: Spontaneous
  Country: GB (occurrence: None)
  Receive Date: 20130723
  Receipt Date: 20130723
  Transmission Date: 20140515
  Serious: Yes (Hospitalization)
  Sender: FDA-Public Use
  Company Number: 2013-002312

PATIENT
  Sex: Female

DRUGS (2)
  1. ASACOL (MESALAZINE) MODIFIED-RELEASE TABLET, 400 MG [Suspect]
     Route: 048
  2. ASACOL (MESALAZINE) MODIFIED-RELEASE TABLET, 400 MG [Suspect]
     Route: 054

REACTIONS (1)
  - Hospitalisation [None]
